FAERS Safety Report 7384465-1 (Version None)
Quarter: 2011Q1

REPORT INFORMATION
  Report Type: 
  Country: None (occurrence: None)
  Receive Date: 20110330
  Receipt Date: 20110225
  Transmission Date: 20110831
  Serious: Yes (Hospitalization, Disabling, Other)
  Sender: FDA-Public Use
  Company Number: CA-BAYER-2011-004971

PATIENT
  Sex: Female

DRUGS (3)
  1. CANESORAL [Suspect]
     Indication: FUNGAL INFECTION
     Dosage: UNK
     Route: 048
  2. CIPRO [Concomitant]
  3. CANESTEN 1 COMFORTAB COMBI-PAK,CANESTEN COMFORTAB COMBI-PAK 1 [Suspect]
     Indication: FUNGAL INFECTION
     Dosage: 1 DF, ONCE
     Route: 067
     Dates: start: 20040101, end: 20040101

REACTIONS (20)
  - VULVOVAGINAL PAIN [None]
  - VISION BLURRED [None]
  - URINE OUTPUT DECREASED [None]
  - PROCTALGIA [None]
  - HEADACHE [None]
  - DRUG HYPERSENSITIVITY [None]
  - ABDOMINAL DISCOMFORT [None]
  - PAIN [None]
  - COORDINATION ABNORMAL [None]
  - GASTROINTESTINAL PAIN [None]
  - HEPATIC PAIN [None]
  - PHARYNGITIS STREPTOCOCCAL [None]
  - RENAL PAIN [None]
  - OROPHARYNGEAL PAIN [None]
  - EAR INFECTION [None]
  - VULVOVAGINAL SWELLING [None]
  - TONGUE ULCERATION [None]
  - MENTAL DISORDER [None]
  - CHROMATURIA [None]
  - DISORIENTATION [None]
